FAERS Safety Report 4734894-7 (Version None)
Quarter: 2005Q3

REPORT INFORMATION
  Report Type: 
  Country: None (occurrence: None)
  Receive Date: 20050804
  Receipt Date: 20050726
  Transmission Date: 20060218
  Serious: Yes (Hospitalization)
  Sender: FDA-Public Use
  Company Number: PHEH2005US08246

PATIENT
  Age: 45 Year
  Sex: Female
  Weight: 82 kg

DRUGS (5)
  1. DIOVAN HCT [Suspect]
     Indication: HYPERTENSION
     Dosage: UNK, QD
     Dates: start: 19990101, end: 20000101
  2. ATENOLOL [Concomitant]
     Indication: HYPERTENSION
     Dosage: 15 MG, BID
  3. CATAPRES [Concomitant]
  4. RESTORIL [Concomitant]
     Indication: NERVOUSNESS
  5. XANAX [Concomitant]
     Dosage: 2 MG, UNK

REACTIONS (3)
  - CARDIOMEGALY [None]
  - DRUG INEFFECTIVE [None]
  - MYOCARDIAL INFARCTION [None]
